FAERS Safety Report 7389693-7 (Version None)
Quarter: 2011Q2

REPORT INFORMATION
  Report Type: 
  Country: None (occurrence: None)
  Receive Date: 20110401
  Receipt Date: 20110324
  Transmission Date: 20111010
  Serious: Yes (Other)
  Sender: FDA-Public Use
  Company Number: IT-MPIJNJ-2011-01267

PATIENT

DRUGS (3)
  1. DELTACORTENE [Concomitant]
     Dosage: UNK
     Route: 048
     Dates: start: 20101019
  2. VELCADE [Suspect]
     Indication: PLASMABLASTIC LYMPHOMA
     Dosage: 2 MG, UNK
     Route: 042
     Dates: start: 20101019, end: 20101126
  3. ALKERAN [Concomitant]
     Dosage: 7 DF, UNK
     Dates: start: 20101019

REACTIONS (1)
  - AUTOIMMUNE THYROIDITIS [None]
